FAERS Safety Report 13946969 (Version 1)
Quarter: 2017Q3

REPORT INFORMATION
  Report Type: Spontaneous
  Country: US (occurrence: US)
  Receive Date: 20170907
  Receipt Date: 20170907
  Transmission Date: 20171128
  Serious: No
  Sender: FDA-Public Use
  Company Number: US-ELI_LILLY_AND_COMPANY-US201709001922

PATIENT
  Age: 71 Year
  Sex: Female

DRUGS (2)
  1. TRULICITY [Suspect]
     Active Substance: DULAGLUTIDE
     Indication: TYPE 2 DIABETES MELLITUS
     Dosage: 1.5 MG, WEEKLY (1/W)
     Dates: start: 201503
  2. TRULICITY [Suspect]
     Active Substance: DULAGLUTIDE
     Dosage: 1.5 MG, WEEKLY (1/W)

REACTIONS (4)
  - Drug dose omission [Unknown]
  - Glycosylated haemoglobin increased [Unknown]
  - Hypoacusis [Unknown]
  - Plasminogen activator inhibitor increased [Unknown]

NARRATIVE: CASE EVENT DATE: 201704
